FAERS Safety Report 9398318 (Version 3)
Quarter: 2013Q4

REPORT INFORMATION
  Report Type: Report from Study
  Country: DE (occurrence: DE)
  Receive Date: 20130712
  Receipt Date: 20131011
  Transmission Date: 20140711
  Serious: Yes (Hospitalization)
  Sender: FDA-Public Use
  Company Number: DE-AMGEN-DEUNI2013048404

PATIENT
  Sex: Female
  Weight: 70 kg

DRUGS (2)
  1. ROMIPLOSTIM [Suspect]
     Indication: IMMUNE THROMBOCYTOPENIC PURPURA
     Dosage: 4 MUG/KG, QWK
     Route: 058
     Dates: start: 20130221, end: 20130619
  2. PREDNISOLON [Concomitant]
     Dosage: UNK
     Dates: start: 201201

REACTIONS (4)
  - Vomiting [Recovering/Resolving]
  - Dermatitis acneiform [Recovering/Resolving]
  - Pruritus [Recovering/Resolving]
  - Dizziness [Recovering/Resolving]
